FAERS Safety Report 4998872-5 (Version None)
Quarter: 2006Q2

REPORT INFORMATION
  Report Type: 
  Country: None (occurrence: None)
  Receive Date: 20060510
  Receipt Date: 20050830
  Transmission Date: 20061013
  Serious: Yes (Hospitalization, Disabling)
  Sender: FDA-Public Use
  Company Number: US-MERCK-0509USA00136

PATIENT
  Age: 58 Year
  Sex: Male
  Weight: 109 kg

DRUGS (21)
  1. VIOXX [Suspect]
     Indication: ARTHRITIS
     Route: 048
     Dates: start: 20000301, end: 20001028
  2. VIOXX [Suspect]
     Route: 048
     Dates: start: 20011001, end: 20020710
  3. VIOXX [Suspect]
     Route: 048
     Dates: start: 20030801, end: 20031001
  4. ENDOCET [Suspect]
     Route: 065
  5. AMBIEN [Concomitant]
     Route: 065
  6. ATENOLOL [Concomitant]
     Route: 065
  7. HYTRIN [Concomitant]
     Route: 065
  8. ZOCOR [Concomitant]
     Route: 048
  9. FLONASE [Concomitant]
     Route: 065
  10. SUCRALFATE [Concomitant]
     Route: 065
  11. VIAGRA [Concomitant]
     Route: 065
  12. PROCARDIA [Concomitant]
     Route: 065
  13. PRILOSEC [Concomitant]
     Route: 048
  14. FUROSEMIDE [Concomitant]
     Route: 065
  15. MINITRAN [Concomitant]
     Route: 065
  16. TERAZOSIN HYDROCHLORIDE [Concomitant]
     Route: 065
  17. NIFEDIPINE [Concomitant]
     Route: 065
  18. XALATAN [Concomitant]
     Route: 065
  19. CHLORHEXIDINE HYDROCHLORIDE [Concomitant]
     Route: 065
  20. ADVAIR DISKUS 100/50 [Concomitant]
     Route: 065
  21. NABUMETONE [Concomitant]
     Route: 065

REACTIONS (24)
  - ACUTE MYOCARDIAL INFARCTION [None]
  - ADVERSE EVENT [None]
  - ANGINA PECTORIS [None]
  - ARTERIOSCLEROSIS CORONARY ARTERY [None]
  - ASTHMA [None]
  - CARDIAC FAILURE CONGESTIVE [None]
  - CARDIAC VALVE DISEASE [None]
  - CAROTID ARTERY STENOSIS [None]
  - CHEST PAIN [None]
  - CONVULSION [None]
  - CORONARY ARTERY DISEASE [None]
  - CYST [None]
  - GASTROINTESTINAL PAIN [None]
  - KNEE ARTHROPLASTY [None]
  - MASTOIDITIS [None]
  - MIGRAINE [None]
  - MYOCARDIAL INFARCTION [None]
  - OBESITY [None]
  - OEDEMA PERIPHERAL [None]
  - POSTOPERATIVE INFECTION [None]
  - SLEEP APNOEA SYNDROME [None]
  - STENT OCCLUSION [None]
  - STOMACH DISCOMFORT [None]
  - VISION BLURRED [None]
